FAERS Safety Report 23297850 (Version 1)
Quarter: 2023Q4

REPORT INFORMATION
  Report Type: Spontaneous
  Country: CN (occurrence: CN)
  Receive Date: 20231214
  Receipt Date: 20231214
  Transmission Date: 20240109
  Serious: Yes (Hospitalization)
  Sender: FDA-Public Use
  Company Number: CN-CMP PHARMA-2023CMP00078

PATIENT
  Age: 6 Decade
  Sex: Female

DRUGS (3)
  1. HYDROCORTISONE [Suspect]
     Active Substance: HYDROCORTISONE
     Indication: Hypopituitarism
     Dosage: RATE OF 2.5 MG/MIN
     Route: 042
  2. GLYCEROPHOSPHATE SODIUM [Concomitant]
     Dosage: ADMINISTRATED FROM THE 23RD DAY TO THE 29TH DAY
  3. COMPOUND AMINO ACID (18AA-V-SF) [Concomitant]
     Dosage: ADMINISTRATED FROM THE 23RD DAY TO THE 29TH DAY

REACTIONS (1)
  - Anaphylactic reaction [Recovered/Resolved]
